FAERS Safety Report 25363283 (Version 1)
Quarter: 2025Q2

REPORT INFORMATION
  Report Type: Spontaneous
  Country: FR (occurrence: FR)
  Receive Date: 20250527
  Receipt Date: 20250527
  Transmission Date: 20250717
  Serious: Yes (Life-Threatening)
  Sender: MYLAN
  Company Number: None

PATIENT
  Age: 69 Year
  Sex: Male
  Weight: 76 kg

DRUGS (16)
  1. METFORMIN [Interacting]
     Active Substance: METFORMIN HYDROCHLORIDE
     Indication: Type 2 diabetes mellitus
     Dosage: 2 GRAM, QD
     Dates: end: 20250308
  2. FUROSEMIDE [Interacting]
     Active Substance: FUROSEMIDE
     Indication: Product used for unknown indication
     Dosage: 20 MILLIGRAM, QD
     Dates: start: 20250227, end: 20250302
  3. PERINDOPRIL [Interacting]
     Active Substance: PERINDOPRIL
     Indication: Hypertension
     Dosage: 8 MILLIGRAM, QD
     Dates: start: 20250306, end: 20250308
  4. EMPAGLIFLOZIN [Interacting]
     Active Substance: EMPAGLIFLOZIN
     Indication: Diabetes mellitus
     Dosage: 20 MILLIGRAM, QD
     Dates: start: 20250306, end: 20250308
  5. FUROSEMIDE [Interacting]
     Active Substance: FUROSEMIDE
     Indication: Product used for unknown indication
     Dosage: 40 MILLIGRAM, QD
     Dates: start: 20250302, end: 20250305
  6. GLICLAZIDE [Concomitant]
     Active Substance: GLICLAZIDE
  7. MIANSERIN HYDROCHLORIDE [Concomitant]
     Active Substance: MIANSERIN HYDROCHLORIDE
  8. OXAZEPAM [Concomitant]
     Active Substance: OXAZEPAM
  9. DEPAKOTE [Concomitant]
     Active Substance: DIVALPROEX SODIUM
  10. ACETAMINOPHEN [Concomitant]
     Active Substance: ACETAMINOPHEN
  11. RIVAROXABAN [Concomitant]
     Active Substance: RIVAROXABAN
  12. LANSOPRAZOLE [Concomitant]
     Active Substance: LANSOPRAZOLE
  13. COVERAM [Concomitant]
     Active Substance: AMLODIPINE\PERINDOPRIL
  14. SILODOSIN [Concomitant]
     Active Substance: SILODOSIN
  15. JANUMET [Concomitant]
     Active Substance: METFORMIN HYDROCHLORIDE\SITAGLIPTIN PHOSPHATE
  16. ATORVASTATIN [Concomitant]
     Active Substance: ATORVASTATIN

REACTIONS (4)
  - Faecal vomiting [Recovered/Resolved]
  - Acute kidney injury [Recovered/Resolved]
  - Lactic acidosis [Recovered/Resolved]
  - Drug interaction [Unknown]

NARRATIVE: CASE EVENT DATE: 20250309
